FAERS Safety Report 4643193-3 (Version None)
Quarter: 2005Q2

REPORT INFORMATION
  Report Type: 
  Country: None (occurrence: None)
  Receive Date: 20050422
  Receipt Date: 20050118
  Transmission Date: 20051028
  Serious: Yes (Disabling, Other)
  Sender: FDA-Public Use
  Company Number: DE-MERCK-0501DEU00182

PATIENT
  Age: 55 Year
  Sex: Female
  Weight: 62 kg

DRUGS (6)
  1. VIOXX [Suspect]
     Indication: ARTHROPATHY
     Route: 048
     Dates: start: 20000922
  2. VIOXX [Suspect]
     Route: 048
     Dates: end: 20001019
  3. INSULIN HUMAN [Concomitant]
     Indication: DIABETES MELLITUS
     Route: 065
     Dates: start: 20000101
  4. INSULIN HUMAN, ISOPHANE [Concomitant]
     Indication: DIABETES MELLITUS
     Route: 065
     Dates: start: 20000101
  5. DOMPERIDONE [Concomitant]
     Indication: DYSPEPSIA
     Route: 048
     Dates: start: 20000101
  6. METOPROLOL SUCCINATE [Concomitant]
     Indication: HYPERTENSION
     Route: 048
     Dates: start: 19990101

REACTIONS (3)
  - BALANCE DISORDER [None]
  - CEREBELLAR INFARCTION [None]
  - TREMOR [None]
